FAERS Safety Report 15500461 (Version 2)
Quarter: 2018Q4

REPORT INFORMATION
  Report Type: Spontaneous
  Country: JP (occurrence: JP)
  Receive Date: 20181015
  Receipt Date: 20181019
  Transmission Date: 20190205
  Serious: Yes (Other)
  Sender: FDA-Public Use
  Company Number: JP-PFIZER INC-2018416929

PATIENT
  Age: 26 Year
  Sex: Male
  Weight: 72 kg

DRUGS (1)
  1. ANCARON [Suspect]
     Active Substance: AMIODARONE HYDROCHLORIDE
     Indication: VENTRICULAR TACHYCARDIA
     Dosage: UNK
     Route: 048
     Dates: start: 201107

REACTIONS (9)
  - Blood thyroid stimulating hormone increased [Unknown]
  - Diarrhoea [Unknown]
  - Thyroxine free increased [Unknown]
  - Thyrotoxic crisis [Unknown]
  - Pyrexia [Unknown]
  - Jaundice [Unknown]
  - Hyperthyroidism [Unknown]
  - Tachycardia [Unknown]
  - Cardiac failure [Unknown]
